FAERS Safety Report 13733195 (Version 1)
Quarter: 2017Q3

REPORT INFORMATION
  Report Type: Spontaneous
  Country: US (occurrence: US)
  Receive Date: 20170707
  Receipt Date: 20170707
  Transmission Date: 20171127
  Serious: No
  Sender: FDA-Public Use
  Company Number: US-ROCHE-1412091

PATIENT
  Age: 88 Year
  Sex: Female

DRUGS (1)
  1. GAZYVA [Suspect]
     Active Substance: OBINUTUZUMAB
     Indication: CHRONIC LYMPHOCYTIC LEUKAEMIA
     Dosage: GIVEN ON DAY ONE AND DAY TWO
     Route: 042

REACTIONS (2)
  - Thrombocytopenia [Unknown]
  - Neutropenia [Unknown]
